FAERS Safety Report 4895811-2 (Version None)
Quarter: 2005Q4

REPORT INFORMATION
  Report Type: 
  Country: None (occurrence: None)
  Receive Date: 20051228
  Receipt Date: 20051013
  Transmission Date: 20060501
  Serious: Yes (Other)
  Sender: FDA-Public Use
  Company Number: 2005RL000153

PATIENT
  Age: 52 Year
  Sex: Male

DRUGS (4)
  1. ANTARA (MICRONIZED) [Suspect]
     Indication: DRUG USE FOR UNKNOWN INDICATION
     Dosage: 43 MG;QD;PO
     Route: 048
     Dates: start: 20050615, end: 20051012
  2. ATENOLOL [Concomitant]
  3. NEXIUM [Concomitant]
  4. LISINOPRIL [Concomitant]

REACTIONS (2)
  - CATARACT [None]
  - VISION BLURRED [None]
